FAERS Safety Report 17487874 (Version 5)
Quarter: 2020Q2

REPORT INFORMATION
  Report Type: Spontaneous
  Country: US (occurrence: US)
  Receive Date: 20200303
  Receipt Date: 20200415
  Transmission Date: 20200713
  Serious: Yes (Hospitalization)
  Sender: FDA-Public Use
  Company Number: US-PFIZER INC-2020092540

PATIENT
  Age: 68 Year
  Sex: Female
  Weight: 77.98 kg

DRUGS (3)
  1. PRISTIQ EXTENDED-RELEASE [Suspect]
     Active Substance: DESVENLAFAXINE SUCCINATE
     Indication: POST-TRAUMATIC STRESS DISORDER
     Dosage: 100 MG, 1X/DAY (DAILY)
     Route: 048
     Dates: start: 2018
  2. PRISTIQ EXTENDED-RELEASE [Suspect]
     Active Substance: DESVENLAFAXINE SUCCINATE
     Indication: DEPRESSION
     Dosage: 50 MG, UNK
  3. XANAX [Concomitant]
     Active Substance: ALPRAZOLAM
     Dosage: 0.25 MG, AS NEEDED

REACTIONS (3)
  - Impatience [Unknown]
  - Feeling abnormal [Unknown]
  - Fatigue [Unknown]
